FAERS Safety Report 8507957-8 (Version None)
Quarter: 2012Q2

REPORT INFORMATION
  Report Type: 
  Country: None (occurrence: None)
  Receive Date: 20120405
  Receipt Date: 20091026
  Transmission Date: 20120825
  Serious: Yes (Hospitalization, Disabling)
  Sender: FDA-Public Use
  Company Number: PHEH2009US01278

PATIENT
  Age: 74 Year
  Sex: Female
  Weight: 49 kg

DRUGS (8)
  1. RECLAST [Suspect]
     Indication: OSTEOPOROSIS
     Dosage: 5 MG, ONCE/SINGLE, INTRAVENOUS
     Route: 042
  2. PERCOCET [Concomitant]
  3. CIPRO [Concomitant]
  4. COREG [Concomitant]
  5. ZETIA [Concomitant]
  6. LASIX [Concomitant]
  7. LISINOPRIL [Concomitant]
  8. PRAVACHOL [Concomitant]

REACTIONS (9)
  - BACK PAIN [None]
  - C-REACTIVE PROTEIN INCREASED [None]
  - PAIN [None]
  - SYNOVITIS [None]
  - BLOOD CREATININE INCREASED [None]
  - ARTHRALGIA [None]
  - RED BLOOD CELL SEDIMENTATION RATE INCREASED [None]
  - ARTHRITIS [None]
  - FALL [None]
